FAERS Safety Report 5044869-9 (Version None)
Quarter: 2006Q2

REPORT INFORMATION
  Report Type: 
  Country: None (occurrence: None)
  Receive Date: 20060601
  Receipt Date: 20060307
  Transmission Date: 20061013
  Serious: No
  Sender: FDA-Public Use
  Company Number: 2006-BP-01575BP

PATIENT
  Age: 72 Year
  Sex: Female

DRUGS (3)
  1. SPIRIVA [Suspect]
     Indication: EMPHYSEMA
     Dosage: 18 MCG (18 MCG,1 QD),IH
     Dates: start: 20060127
  2. PREMARIN [Concomitant]
  3. ALBUTEROL [Concomitant]

REACTIONS (2)
  - EYE DISCHARGE [None]
  - EYE INFECTION [None]
